FAERS Safety Report 24630688 (Version 2)
Quarter: 2024Q4

REPORT INFORMATION
  Report Type: Spontaneous
  Country: AR (occurrence: AR)
  Receive Date: 20241118
  Receipt Date: 20241119
  Transmission Date: 20250115
  Serious: Yes (Other)
  Sender: SANOFI AVENTIS
  Company Number: AR-SA-2024SA319955

PATIENT
  Age: 20 Year
  Sex: Female

DRUGS (1)
  1. DUPILUMAB [Suspect]
     Active Substance: DUPILUMAB
     Indication: Dermatitis atopic
     Dosage: UNK
     Route: 058
     Dates: start: 20240821, end: 20240930

REACTIONS (2)
  - Tuberculosis [Not Recovered/Not Resolved]
  - Ear infection [Unknown]

NARRATIVE: CASE EVENT DATE: 20240101
